FAERS Safety Report 10419695 (Version 5)
Quarter: 2016Q3

REPORT INFORMATION
  Report Type: Spontaneous
  Country: US (occurrence: US)
  Receive Date: 20140829
  Receipt Date: 20160927
  Transmission Date: 20161109
  Serious: Yes (Hospitalization, Other)
  Sender: FDA-Public Use
  Company Number: US-GLAXOSMITHKLINE-A1086341A

PATIENT
  Age: 69 Year
  Sex: Male

DRUGS (5)
  1. VENTOLIN [Suspect]
     Active Substance: ALBUTEROL SULFATE
     Indication: CHRONIC OBSTRUCTIVE PULMONARY DISEASE
     Dosage: 2 PUFFS AS REQUIRED
     Route: 055
     Dates: start: 201301
  2. ADVAIR HFA [Suspect]
     Active Substance: FLUTICASONE PROPIONATE\SALMETEROL XINAFOATE
     Dosage: 500/50 MCG, UNK
     Route: 055
  3. PERCOCET [Concomitant]
     Active Substance: ACETAMINOPHEN\OXYCODONE HYDROCHLORIDE
  4. ADVAIR HFA [Suspect]
     Active Substance: FLUTICASONE PROPIONATE\SALMETEROL XINAFOATE
     Indication: CHRONIC OBSTRUCTIVE PULMONARY DISEASE
     Dosage: 250/50 MCG, 1 PUFF(S), BID
     Route: 065
     Dates: start: 201301
  5. ADVAIR HFA [Suspect]
     Active Substance: FLUTICASONE PROPIONATE\SALMETEROL XINAFOATE
     Dosage: UNK

REACTIONS (10)
  - Cervical vertebral fracture [Unknown]
  - Road traffic accident [Unknown]
  - Chronic obstructive pulmonary disease [Unknown]
  - Pelvic fracture [Unknown]
  - Memory impairment [Not Recovered/Not Resolved]
  - Accident [Unknown]
  - Neoplasm malignant [Not Recovered/Not Resolved]
  - Spinal fracture [Unknown]
  - Hospitalisation [Unknown]
  - Drug administration error [Not Recovered/Not Resolved]

NARRATIVE: CASE EVENT DATE: 20130128
